FAERS Safety Report 20573555 (Version 1)
Quarter: 2022Q1

REPORT INFORMATION
  Report Type: Spontaneous
  Country: US (occurrence: None)
  Receive Date: 20220309
  Receipt Date: 20220309
  Transmission Date: 20220423
  Serious: Yes (Hospitalization, Disabling, Other)
  Sender: FDA-Public Use
  Company Number: None

PATIENT
  Age: 55 Year
  Sex: Male
  Weight: 65.77 kg

DRUGS (4)
  1. BRIVIACT [Suspect]
     Active Substance: BRIVARACETAM
     Indication: Seizure
     Dosage: FREQUENCY : AS DIRECTED;?
     Route: 048
     Dates: end: 202009
  2. OXCARBAZEPINE [Suspect]
     Active Substance: OXCARBAZEPINE
  3. LEVETIRACETAM [Suspect]
     Active Substance: LEVETIRACETAM
  4. NIFEDIPINE [Suspect]
     Active Substance: NIFEDIPINE

REACTIONS (4)
  - Illness [None]
  - Loss of consciousness [None]
  - Seizure [None]
  - Blood pressure measurement [None]

NARRATIVE: CASE EVENT DATE: 20180128
